FAERS Safety Report 17399646 (Version 1)
Quarter: 2020Q1

REPORT INFORMATION
  Report Type: Spontaneous
  Country: US (occurrence: US)
  Receive Date: 20200211
  Receipt Date: 20200211
  Transmission Date: 20200409
  Serious: Yes (Other)
  Sender: FDA-Public Use
  Company Number: US-DRREDDYS-USA/USA/20/0119499

PATIENT
  Age: 50 Year
  Sex: Female

DRUGS (4)
  1. OLANZAPINE ORALLY DISINTEGRATING TABLET [Suspect]
     Active Substance: OLANZAPINE
     Indication: MENTAL DISORDER
     Route: 048
  2. OLANZAPINE ORALLY DISINTEGRATING TABLET [Suspect]
     Active Substance: OLANZAPINE
  3. OLANZAPINE ORALLY DISINTEGRATING TABLET [Suspect]
     Active Substance: OLANZAPINE
  4. ARIPIPRAZOLE. [Suspect]
     Active Substance: ARIPIPRAZOLE
     Indication: MENTAL DISORDER

REACTIONS (1)
  - Embolism venous [Unknown]
